FAERS Safety Report 4404674-0 (Version None)
Quarter: 2004Q3

REPORT INFORMATION
  Report Type: 
  Country: None (occurrence: None)
  Receive Date: 20040720
  Receipt Date: 20040708
  Transmission Date: 20050211
  Serious: Yes (Hospitalization)
  Sender: FDA-Public Use
  Company Number: 2004222821FR

PATIENT
  Age: 80 Year
  Sex: Male

DRUGS (2)
  1. CELEBREX [Suspect]
     Indication: OSTEOARTHRITIS
     Dosage: 200 MG, QD, ORAL  : 100 MG, QD, ORAL
     Route: 048
     Dates: start: 20031101, end: 20031201
  2. CELEBREX [Suspect]
     Indication: OSTEOARTHRITIS
     Dosage: 200 MG, QD, ORAL  : 100 MG, QD, ORAL
     Route: 048
     Dates: start: 20031201, end: 20040601

REACTIONS (2)
  - CHOLELITHIASIS [None]
  - GASTRIC ULCER [None]
